FAERS Safety Report 6380296-X (Version None)
Quarter: 2009Q3

REPORT INFORMATION
  Report Type: 
  Country: None (occurrence: None)
  Receive Date: 20090929
  Receipt Date: 20090914
  Transmission Date: 20100115
  Serious: Yes (Other)
  Sender: FDA-Public Use
  Company Number: US-ROCHE-656567

PATIENT
  Age: 55 Year
  Sex: Female

DRUGS (3)
  1. BONIVA [Suspect]
     Indication: DRUG USE FOR UNKNOWN INDICATION
     Route: 065
     Dates: start: 20060101, end: 20090601
  2. VITAMIN D3 [Concomitant]
     Dosage: DRUG: VIT. D3
  3. CALCIUM [Concomitant]
     Dosage: WITH EVERY MEAL DAILY.

REACTIONS (4)
  - LOOSE TOOTH [None]
  - OSTEOPOROSIS [None]
  - RESORPTION BONE INCREASED [None]
  - TOOTH LOSS [None]
